FAERS Safety Report 11432009 (Version 2)
Quarter: 2015Q4

REPORT INFORMATION
  Report Type: Spontaneous
  Country: US (occurrence: US)
  Receive Date: 20150828
  Receipt Date: 20151009
  Transmission Date: 20160304
  Serious: No
  Sender: FDA-Public Use
  Company Number: US-PFIZER INC-2015277832

PATIENT
  Age: 71 Year
  Sex: Female
  Weight: 66 kg

DRUGS (4)
  1. LYRICA [Suspect]
     Active Substance: PREGABALIN
     Indication: NERVOUS SYSTEM DISORDER
     Dosage: 50 MG, 2X/DAY
     Dates: start: 201508
  2. LYRICA [Suspect]
     Active Substance: PREGABALIN
     Indication: BURNING MOUTH SYNDROME
     Dosage: 25 MG, 1X/DAY
  3. LYRICA [Suspect]
     Active Substance: PREGABALIN
     Indication: NEUROPATHY PERIPHERAL
     Dosage: 50 MG, 1X/DAY
  4. FELODIPINE. [Concomitant]
     Active Substance: FELODIPINE
     Indication: HYPERTENSION
     Dosage: UNK, 1X/DAY

REACTIONS (5)
  - Condition aggravated [Unknown]
  - Weight increased [Unknown]
  - Dry mouth [Not Recovered/Not Resolved]
  - Abdominal distension [Unknown]
  - Drug ineffective for unapproved indication [Not Recovered/Not Resolved]
